FAERS Safety Report 9912903 (Version 1)
Quarter: 2014Q1

REPORT INFORMATION
  Report Type: Spontaneous
  Country: US (occurrence: US)
  Receive Date: 20140220
  Receipt Date: 20140220
  Transmission Date: 20141002
  Serious: No
  Sender: FDA-Public Use
  Company Number: US-009507513-1402USA003218

PATIENT
  Sex: Female

DRUGS (1)
  1. DULERA [Suspect]
     Dosage: TOTAL DAILY DOSE: 2 PUFFS, TWICE A DAY
     Route: 055

REACTIONS (2)
  - Dyspnoea [Unknown]
  - Product quality issue [Unknown]
